FAERS Safety Report 21521834 (Version 3)
Quarter: 2025Q3

REPORT INFORMATION
  Report Type: Report from Study
  Country: EU (occurrence: EU)
  Receive Date: 20221028
  Receipt Date: 20250812
  Transmission Date: 20251021
  Serious: Yes (Other)
  Sender: AUROBINDO
  Company Number: EU-002147023-NVSC2022DE232106

PATIENT
  Sex: Female

DRUGS (3)
  1. HYDROMORPHONE [Suspect]
     Active Substance: HYDROMORPHONE
     Indication: Mucosal inflammation
     Route: 065
  2. MORPHINE SULFATE [Suspect]
     Active Substance: MORPHINE SULFATE
     Indication: Mucosal inflammation
     Dosage: 1 MILLIGRAM, EVERY HOUR(1 MG, PERFUSOR AT A LOW DOSE, ABOUT 1 MG MSI (MORPHINE SULFATE PER INJECTION
     Route: 065
  3. ACETAMINOPHEN\CAFFEINE\PROPYPHENAZONE [Suspect]
     Active Substance: ACETAMINOPHEN\CAFFEINE\PROPYPHENAZONE
     Indication: Agranulocytosis
     Route: 065

REACTIONS (4)
  - Unresponsive to stimuli [Unknown]
  - Oxygen saturation decreased [Recovered/Resolved]
  - Product use in unapproved indication [Unknown]
  - Product name confusion [Unknown]
